FAERS Safety Report 24394379 (Version 2)
Quarter: 2024Q4

REPORT INFORMATION
  Report Type: Spontaneous
  Country: EG (occurrence: EG)
  Receive Date: 20241004
  Receipt Date: 20241015
  Transmission Date: 20250115
  Serious: Yes (Life-Threatening, Hospitalization, Disabling, Other)
  Sender: NOVO NORDISK
  Company Number: EG-NOVOPROD-1289305

PATIENT
  Age: 529 Month
  Sex: Female
  Weight: 120 kg

DRUGS (5)
  1. ASPIRIN [Concomitant]
     Active Substance: ASPIRIN
     Indication: Anticoagulant therapy
     Dosage: 2 TABS/MORNING PER DAY (FROM 3 YEARS)
     Route: 048
  2. INSULIN HUMAN [Suspect]
     Active Substance: INSULIN HUMAN
     Indication: Diabetes mellitus
     Dosage: 75 IU, QD (35 IU MORNING AND 40 IU NIGHT USUAL DOSAGE, ACCORDING TO BGL)
     Route: 058
  3. PLAVIX [Concomitant]
     Active Substance: CLOPIDOGREL BISULFATE
     Indication: Anticoagulant therapy
     Dosage: UNK
  4. ATORVASTATIN CALCIUM [Concomitant]
     Active Substance: ATORVASTATIN CALCIUM
     Indication: Body fat disorder
     Dosage: 2 TABS/DAY
  5. ATORVASTATIN CALCIUM [Concomitant]
     Active Substance: ATORVASTATIN CALCIUM
     Indication: Hypercholesterolaemia

REACTIONS (3)
  - Cerebrovascular accident [Not Recovered/Not Resolved]
  - Brain stem stroke [Not Recovered/Not Resolved]
  - Diabetic eye disease [Unknown]
